FAERS Safety Report 10694962 (Version 1)
Quarter: 2015Q1

REPORT INFORMATION
  Report Type: Spontaneous
  Country: AT (occurrence: AT)
  Receive Date: 20150107
  Receipt Date: 20150107
  Transmission Date: 20150721
  Serious: Yes (Hospitalization)
  Sender: FDA-Public Use
  Company Number: AT-CELGENE-AUT-2014121103

PATIENT

DRUGS (8)
  1. REVLIMID [Suspect]
     Active Substance: LENALIDOMIDE
     Indication: CHRONIC MYELOMONOCYTIC LEUKAEMIA
     Route: 048
     Dates: start: 2013
  2. REVLIMID [Suspect]
     Active Substance: LENALIDOMIDE
     Indication: HAEMOPHILIA
  3. AZACITIDINE INJECTABLE [Suspect]
     Active Substance: AZACITIDINE
     Indication: CHRONIC MYELOMONOCYTIC LEUKAEMIA
     Route: 041
     Dates: start: 20131212
  4. RED BLOOD CELLS [Concomitant]
     Active Substance: HUMAN RED BLOOD CELL
     Indication: PRODUCT USED FOR UNKNOWN INDICATION
     Route: 065
     Dates: start: 201410
  5. RITUXIMAB [Concomitant]
     Active Substance: RITUXIMAB
     Indication: HAEMOPHILIA
     Route: 048
  6. AZACITIDINE INJECTABLE [Suspect]
     Active Substance: AZACITIDINE
     Indication: HAEMOPHILIA
     Route: 041
     Dates: start: 20141006
  7. PREDNISOLONE. [Concomitant]
     Active Substance: PREDNISOLONE
     Indication: ARTERITIS
     Dosage: .0476 DOSAGE FORMS
     Route: 065
  8. CYCLOPHOSPHAMID [Concomitant]
     Active Substance: CYCLOPHOSPHAMIDE
     Indication: HAEMOPHILIA
     Route: 048

REACTIONS (6)
  - Pyrexia [Unknown]
  - Arteritis [Unknown]
  - Haematoma [Unknown]
  - Musculoskeletal chest pain [Unknown]
  - Pain in extremity [Unknown]
  - Headache [Unknown]

NARRATIVE: CASE EVENT DATE: 20131113
